FAERS Safety Report 18173887 (Version 1)
Quarter: 2020Q3

REPORT INFORMATION
  Report Type: Other
  Country: CA (occurrence: CA)
  Receive Date: 20200820
  Receipt Date: 20200820
  Transmission Date: 20201103
  Serious: Yes (Hospitalization, Other)
  Sender: FDA-Public Use
  Company Number: CA-CELLTRION INC.-2020CA025213

PATIENT

DRUGS (9)
  1. CARBOPLATIN. [Suspect]
     Active Substance: CARBOPLATIN
     Dosage: 549 MG
     Route: 042
  2. CARBOPLATIN. [Suspect]
     Active Substance: CARBOPLATIN
     Dosage: 549 MG, CYCLIC
     Route: 042
  3. TRASTUZUMAB (UNKNOWN) [Suspect]
     Active Substance: TRASTUZUMAB
     Indication: PRODUCT USED FOR UNKNOWN INDICATION
     Dosage: 292 MG
     Route: 042
  4. CARBOPLATIN. [Suspect]
     Active Substance: CARBOPLATIN
     Indication: PRODUCT USED FOR UNKNOWN INDICATION
     Dosage: 564 MG
     Route: 042
  5. DOCETAXEL. [Suspect]
     Active Substance: DOCETAXEL
     Indication: PRODUCT USED FOR UNKNOWN INDICATION
     Dosage: 134 MG, 1 EVERY 1 WEEK
     Route: 042
  6. CISPLATIN. [Suspect]
     Active Substance: CISPLATIN
     Indication: PRODUCT USED FOR UNKNOWN INDICATION
     Dosage: 134 MG, 1 EVERY 1 WEEK
     Route: 042
  7. DOCETAXEL. [Suspect]
     Active Substance: DOCETAXEL
     Dosage: 134 MG, CYCLIC
     Route: 042
  8. CARBOPLATIN. [Suspect]
     Active Substance: CARBOPLATIN
     Indication: PRODUCT USED FOR UNKNOWN INDICATION
     Dosage: 549 MG, 1 EVERY 1 WEEK
     Route: 042
  9. CISPLATIN. [Suspect]
     Active Substance: CISPLATIN
     Dosage: 134 MG, CYCLIC
     Route: 042

REACTIONS (14)
  - Areflexia [Unknown]
  - Febrile neutropenia [Unknown]
  - Gait disturbance [Unknown]
  - Headache [Unknown]
  - Neuromyopathy [Unknown]
  - Vomiting [Unknown]
  - Acoustic stimulation tests abnormal [Unknown]
  - Diarrhoea [Unknown]
  - Memory impairment [Unknown]
  - Nausea [Unknown]
  - Neuropathy peripheral [Unknown]
  - Asthenia [Unknown]
  - Speech disorder [Unknown]
  - Ataxia [Unknown]
